FAERS Safety Report 7290535-9 (Version None)
Quarter: 2011Q1

REPORT INFORMATION
  Report Type: 
  Country: None (occurrence: None)
  Receive Date: 20110214
  Receipt Date: 20110209
  Transmission Date: 20110831
  Serious: No
  Sender: FDA-Public Use
  Company Number: US-PFIZER INC-2011029790

PATIENT
  Sex: Female
  Weight: 53.968 kg

DRUGS (4)
  1. CLONAZEPAM [Concomitant]
     Dosage: 1 MG, 3X/DAY
     Route: 048
  2. ABILIFY [Suspect]
     Indication: BIPOLAR DISORDER
     Dosage: 2 MG, 1X/DAY
     Route: 048
     Dates: start: 20110101
  3. PRISTIQ [Suspect]
     Indication: BIPOLAR DISORDER
     Dosage: 50 MG, 1X/DAY
     Route: 048
     Dates: start: 20110101
  4. LAMICTAL [Concomitant]
     Dosage: 150 MG, 2X/DAY
     Route: 048

REACTIONS (1)
  - WEIGHT INCREASED [None]
